FAERS Safety Report 5324001-4 (Version None)
Quarter: 2007Q2

REPORT INFORMATION
  Report Type: 
  Country: None (occurrence: None)
  Receive Date: 20070509
  Receipt Date: 20070509
  Transmission Date: 20071010
  Serious: Yes (Hospitalization)
  Sender: FDA-Public Use
  Company Number: None

PATIENT
  Age: 79 Year
  Sex: Male

DRUGS (12)
  1. ALFUZOSIN [Suspect]
     Indication: BENIGN PROSTATIC HYPERPLASIA
     Dosage: 10MG PO QHS
     Route: 048
     Dates: start: 20061101, end: 20070320
  2. TERAZOSIN HCL [Suspect]
     Indication: BENIGN PROSTATIC HYPERPLASIA
     Dosage: 5MG  PO  QHS
     Route: 048
     Dates: start: 19960617, end: 20070320
  3. ASPIRIN [Concomitant]
  4. BRIMONIDINE EYE DROPS [Concomitant]
  5. CYANOCOBALAMIN [Concomitant]
  6. DORZOLAMIDE/TIMOLOL EYE DROPS [Concomitant]
  7. ENALAPRIL [Concomitant]
  8. FINASTERIDE [Concomitant]
  9. SYNTHROID [Concomitant]
  10. MULTI-VITAMIN [Concomitant]
  11. TRAVOPROST EYE DROPS [Concomitant]
  12. METHYLCELLULOSE EYE DROPS [Concomitant]

REACTIONS (2)
  - BLOOD PRESSURE DIASTOLIC DECREASED [None]
  - SYNCOPE [None]
